FAERS Safety Report 24134161 (Version 1)
Quarter: 2024Q3

REPORT INFORMATION
  Report Type: Spontaneous
  Country: US (occurrence: None)
  Receive Date: 20240724
  Receipt Date: 20240724
  Transmission Date: 20241016
  Serious: Yes (Other)
  Sender: UNICHEM
  Company Number: US-Unichem Pharmaceuticals (USA) Inc-UCM202407-000893

PATIENT
  Age: 18 Year
  Sex: Female

DRUGS (1)
  1. AMLODIPINE [Suspect]
     Active Substance: AMLODIPINE BESYLATE
     Indication: Product used for unknown indication

REACTIONS (10)
  - Cardiac failure [Recovered/Resolved]
  - Non-cardiogenic pulmonary oedema [Unknown]
  - Ejection fraction decreased [Unknown]
  - Cardiogenic shock [Unknown]
  - Hypoxia [Unknown]
  - Harlequin syndrome [Unknown]
  - Circulatory collapse [Unknown]
  - Respiratory failure [Unknown]
  - Vasoplegia syndrome [Unknown]
  - Overdose [Unknown]
